FAERS Safety Report 8927550 (Version 1)
Quarter: 2012Q4

REPORT INFORMATION
  Report Type: 
  Country: IE (occurrence: IE)
  Receive Date: 20121127
  Receipt Date: 20121127
  Transmission Date: 20130627
  Serious: No
  Sender: FDA-Public Use
  Company Number: PHFR2012IE004906

PATIENT
  Age: 58 Year
  Sex: Male
  Weight: 93 kg

DRUGS (8)
  1. CLOZARIL [Suspect]
     Dosage: 250 mg, daily
     Route: 048
     Dates: start: 20060816
  2. SODIUM VALPROATE [Concomitant]
     Indication: CONVULSION
     Dosage: 1200 mg, UNK
     Route: 048
  3. L-THYROXINE [Concomitant]
     Indication: HYPOTHYROIDISM
     Dosage: 50 ug, daily
  4. ARIPIPRAZOLE [Concomitant]
     Indication: PSYCHOTIC DISORDER
     Dosage: 30 mg, daily
     Route: 048
  5. ATORVASTATIN [Concomitant]
     Indication: HYPERCHOLESTEROLAEMIA
     Dosage: 10 mg, daily
  6. BISOPROLOL [Concomitant]
     Indication: HYPERTENSION
     Dosage: 5 mg, daily
  7. OMNEXEL [Concomitant]
     Indication: URINARY TRACT DISORDER
     Dosage: 400 mg, daily
     Route: 048
  8. MOVICOL [Concomitant]
     Indication: CONSTIPATION

REACTIONS (1)
  - Haemoglobin increased [Recovered/Resolved]
